FAERS Safety Report 11484192 (Version 1)
Quarter: 2015Q3

REPORT INFORMATION
  Report Type: Spontaneous
  Country: US (occurrence: US)
  Receive Date: 20150903
  Receipt Date: 20150903
  Transmission Date: 20151125
  Serious: No
  Sender: FDA-Public Use
  Company Number: US-ELI_LILLY_AND_COMPANY-US201204009757

PATIENT
  Sex: Female
  Weight: 75.28 kg

DRUGS (2)
  1. CYMBALTA [Suspect]
     Active Substance: DULOXETINE HYDROCHLORIDE
     Dosage: 60 MG, UNKNOWN
     Dates: start: 20110907, end: 201205
  2. CYMBALTA [Suspect]
     Active Substance: DULOXETINE HYDROCHLORIDE
     Indication: MYALGIA
     Dosage: 30 MG, UNKNOWN
     Dates: start: 20110830, end: 20110906

REACTIONS (3)
  - Menorrhagia [Unknown]
  - Galactorrhoea [Unknown]
  - Off label use [Recovered/Resolved]
